FAERS Safety Report 17786276 (Version 1)
Quarter: 2020Q2

REPORT INFORMATION
  Report Type: Spontaneous
  Country: IT (occurrence: IT)
  Receive Date: 20200514
  Receipt Date: 20200514
  Transmission Date: 20200714
  Serious: Yes (Hospitalization, Other)
  Sender: FDA-Public Use
  Company Number: IT-SA-2020SA056839

PATIENT
  Age: 78 Year
  Sex: Male

DRUGS (1)
  1. ENOXAPARIN SODIUM. [Suspect]
     Active Substance: ENOXAPARIN SODIUM
     Indication: SPLENIC INFARCTION
     Dosage: 100 IU/KG, BID

REACTIONS (7)
  - Haemorrhagic transformation stroke [Unknown]
  - Splenic necrosis [Recovered/Resolved]
  - Splenic haemorrhage [Recovered/Resolved]
  - Splenic vein thrombosis [Recovered/Resolved]
  - Haematoma [Unknown]
  - Splenic rupture [Recovered/Resolved]
  - Splenic haematoma [Recovering/Resolving]
